FAERS Safety Report 6430266-8 (Version None)
Quarter: 2009Q4

REPORT INFORMATION
  Report Type: 
  Country: None (occurrence: None)
  Receive Date: 20091106
  Receipt Date: 20091027
  Transmission Date: 20100525
  Serious: No
  Sender: FDA-Public Use
  Company Number: US-ROCHE-659729

PATIENT
  Age: 24 Month
  Sex: Female
  Weight: 15 kg

DRUGS (1)
  1. TAMIFLU [Suspect]
     Route: 048
     Dates: start: 20090924

REACTIONS (1)
  - HALLUCINATION [None]
